FAERS Safety Report 6746002-1 (Version None)
Quarter: 2010Q2

REPORT INFORMATION
  Report Type: 
  Country: None (occurrence: None)
  Receive Date: 20100528
  Receipt Date: 20100519
  Transmission Date: 20101027
  Serious: Yes (Life-Threatening, Other)
  Sender: FDA-Public Use
  Company Number: JP-PFIZER INC-2010064529

PATIENT
  Age: 88 Year
  Sex: Male

DRUGS (4)
  1. SULPERAZON [Suspect]
     Indication: PNEUMONIA
     Dosage: 2G/DAY
     Route: 042
     Dates: start: 20100511, end: 20100519
  2. PENTCILLIN [Concomitant]
  3. GARENOXACIN MESILATE [Concomitant]
     Route: 048
  4. CRAVIT [Concomitant]
     Route: 048

REACTIONS (1)
  - COAGULATION TEST ABNORMAL [None]
